FAERS Safety Report 11137184 (Version 1)
Quarter: 2015Q2

REPORT INFORMATION
  Report Type: Spontaneous
  Country: US (occurrence: US)
  Receive Date: 20150526
  Receipt Date: 20150526
  Transmission Date: 20150821
  Serious: Yes (Other)
  Sender: FDA-Public Use
  Company Number: US-MYLANLABS-2015M1017195

PATIENT

DRUGS (10)
  1. CLOMIFENE [Concomitant]
     Active Substance: CLOMIPHENE
     Indication: CLUSTER HEADACHE
     Dosage: 50MG ONCE PER DAY
     Route: 065
  2. VALPROIC ACID. [Concomitant]
     Active Substance: VALPROIC ACID
     Indication: CLUSTER HEADACHE
     Route: 065
  3. VERAPAMIL [Suspect]
     Active Substance: VERAPAMIL HYDROCHLORIDE
     Indication: CLUSTER HEADACHE
     Dosage: 640 MG/DAY (MAXIMUM DOSE)
     Route: 065
  4. VERAPAMIL [Suspect]
     Active Substance: VERAPAMIL HYDROCHLORIDE
     Indication: OFF LABEL USE
     Dosage: 360 MG/DAY
     Route: 065
  5. CLOMIFENE [Concomitant]
     Active Substance: CLOMIPHENE
     Route: 065
  6. BACLOFEN. [Concomitant]
     Active Substance: BACLOFEN
     Indication: CLUSTER HEADACHE
     Dosage: 60MG
     Route: 065
  7. TOPIRAMATE. [Suspect]
     Active Substance: TOPIRAMATE
     Indication: CLUSTER HEADACHE
     Dosage: 150MG (MAXIMUM DOSE)
     Route: 065
  8. TOPIRAMATE. [Suspect]
     Active Substance: TOPIRAMATE
     Indication: OFF LABEL USE
     Dosage: TAPERED OFF TO 50 MG/DAY
     Route: 065
  9. LITHIUM. [Suspect]
     Active Substance: LITHIUM
     Indication: CLUSTER HEADACHE
     Route: 065
  10. LITHIUM. [Suspect]
     Active Substance: LITHIUM
     Indication: OFF LABEL USE

REACTIONS (3)
  - Arrhythmia [Unknown]
  - Mood altered [Unknown]
  - Dyspnoea [Unknown]
